FAERS Safety Report 5527567-4 (Version None)
Quarter: 2007Q4

REPORT INFORMATION
  Report Type: 
  Country: None (occurrence: None)
  Receive Date: 20071128
  Receipt Date: 20071115
  Transmission Date: 20080405
  Serious: Yes (Hospitalization, Other)
  Sender: FDA-Public Use
  Company Number: US-ELI_LILLY_AND_COMPANY-US200711004144

PATIENT
  Sex: Female

DRUGS (1)
  1. FORTEO [Suspect]
     Indication: OSTEOPOROSIS
     Dates: start: 20060901

REACTIONS (9)
  - ARTHRALGIA [None]
  - DIARRHOEA [None]
  - GASTRIC ULCER [None]
  - MUSCLE SPASMS [None]
  - OSTEOPOROSIS [None]
  - PAIN IN EXTREMITY [None]
  - PULMONARY THROMBOSIS [None]
  - SLEEP DISORDER [None]
  - THROMBOSIS [None]
